FAERS Safety Report 16966506 (Version 3)
Quarter: 2019Q4

REPORT INFORMATION
  Report Type: Report from Study
  Country: CN (occurrence: CN)
  Receive Date: 20191028
  Receipt Date: 20191127
  Transmission Date: 20200122
  Serious: Yes (Hospitalization, Other)
  Sender: FDA-Public Use
  Company Number: NVSC2019CN013142

PATIENT
  Age: 59 Year
  Sex: Female
  Weight: 55.5 kg

DRUGS (16)
  1. LETROZOLE. [Suspect]
     Active Substance: LETROZOLE
     Indication: INVASIVE LOBULAR BREAST CARCINOMA
     Dosage: 2.5 MG, QD
     Route: 048
     Dates: start: 20190208, end: 20191004
  2. ABEMACICLIB [Suspect]
     Active Substance: ABEMACICLIB
     Indication: INVASIVE LOBULAR BREAST CARCINOMA
     Dosage: 150 MG, BID
     Route: 048
     Dates: start: 20180810, end: 20191004
  3. METFORMIN HYDROCHLORIDE. [Concomitant]
     Active Substance: METFORMIN HYDROCHLORIDE
     Indication: DIABETES MELLITUS
     Dosage: 2000 OT
     Route: 065
  4. GLICLAZIDE [Concomitant]
     Active Substance: GLICLAZIDE
     Indication: DIABETES MELLITUS
     Dosage: UNK
     Route: 065
     Dates: start: 201810
  5. ANASTROZOLE. [Suspect]
     Active Substance: ANASTROZOLE
     Indication: INVASIVE LOBULAR BREAST CARCINOMA
     Dosage: 1 MG, QD (TABLET)
     Route: 048
     Dates: start: 20180810, end: 20190110
  6. DOCETAXEL. [Concomitant]
     Active Substance: DOCETAXEL
     Indication: INVASIVE DUCTAL BREAST CARCINOMA
     Dosage: UNK
     Route: 065
     Dates: start: 20181016, end: 20190102
  7. SITAGLIPTIN [Concomitant]
     Active Substance: SITAGLIPTIN
     Indication: DIABETES MELLITUS
     Dosage: UNK
     Route: 065
     Dates: start: 201807
  8. CALCIUM CARBONATE. [Concomitant]
     Active Substance: CALCIUM CARBONATE
     Indication: PROPHYLAXIS
     Dosage: UNK
     Route: 065
     Dates: start: 20190314
  9. ANASTROZOLE. [Suspect]
     Active Substance: ANASTROZOLE
     Dosage: 1 MG, QD (TABLET)
     Route: 048
     Dates: start: 20190207, end: 20190207
  10. NORVASC [Concomitant]
     Active Substance: AMLODIPINE BESYLATE
     Indication: HYPERTENSION
     Dosage: UNK
     Route: 065
     Dates: start: 20180501
  11. ACARBOSE. [Concomitant]
     Active Substance: ACARBOSE
     Indication: DIABETES MELLITUS
     Dosage: UNK
     Route: 065
     Dates: start: 201810
  12. EPIRUBICIN [Concomitant]
     Active Substance: EPIRUBICIN
     Indication: INVASIVE DUCTAL BREAST CARCINOMA
     Route: 065
  13. VITAMIN D [Concomitant]
     Active Substance: VITAMIN D NOS
     Indication: PROPHYLAXIS
     Dosage: UNK
     Route: 065
     Dates: start: 20180615
  14. LOXOPROFEN [Concomitant]
     Active Substance: LOXOPROFEN
     Indication: ARTHRALGIA
     Dosage: UNK
     Route: 065
     Dates: start: 20190302
  15. MIYA-BM [Concomitant]
     Active Substance: CLOSTRIDIUM BUTYRICUM SPORES STRAIN M-55
     Indication: PROPHYLAXIS
     Dosage: UNK
     Route: 065
     Dates: start: 20180810
  16. CYCLOPHOSPHAMIDE. [Concomitant]
     Active Substance: CYCLOPHOSPHAMIDE
     Indication: INVASIVE DUCTAL BREAST CARCINOMA
     Route: 065

REACTIONS (13)
  - Invasive lobular breast carcinoma [Unknown]
  - Trigeminal nerve disorder [Unknown]
  - Dysphagia [Unknown]
  - Trigeminal neuralgia [Recovered/Resolved]
  - Cerebral artery stenosis [Unknown]
  - Hemiparesis [Recovering/Resolving]
  - Metastases to lung [Unknown]
  - Neutropenia [Recovered/Resolved]
  - Malignant neoplasm progression [Unknown]
  - Cerebral infarction [Unknown]
  - Dyslalia [Recovering/Resolving]
  - Concomitant disease aggravated [Recovered/Resolved]
  - Metastases to bone [Unknown]

NARRATIVE: CASE EVENT DATE: 20190603
